FAERS Safety Report 4425582-5 (Version None)
Quarter: 2004Q3

REPORT INFORMATION
  Report Type: 
  Country: None (occurrence: None)
  Receive Date: 20040719
  Receipt Date: 20030929
  Transmission Date: 20050211
  Serious: Yes (Other)
  Sender: FDA-Public Use
  Company Number: 181587

PATIENT
  Sex: Female

DRUGS (1)
  1. AVONEX [Suspect]
     Indication: MULTIPLE SCLEROSIS

REACTIONS (5)
  - HEADACHE [None]
  - HERNIA [None]
  - MULTIPLE SCLEROSIS [None]
  - PROCEDURAL COMPLICATION [None]
  - UNEVALUABLE EVENT [None]
